FAERS Safety Report 7654430 (Version 4)
Quarter: 2014Q1

REPORT INFORMATION
  Report Type: Spontaneous
  Country: US (occurrence: US)
  Receive Date: 20101103
  Receipt Date: 20140114
  Transmission Date: 20141002
  Serious: Yes (Hospitalization, Other)
  Sender: FDA-Public Use
  Company Number: US-BAYER-201039254NA

PATIENT
  Age: 44 Year
  Sex: Female
  Weight: 74.83 kg

DRUGS (7)
  1. YASMIN [Suspect]
     Dosage: UNK
     Route: 048
     Dates: start: 200310, end: 2006
  2. ATENOLOL [Concomitant]
  3. PROTONIX [Concomitant]
  4. ALLEGRA [Concomitant]
  5. MACROBID [Concomitant]
  6. DITROPAN XL [Concomitant]
  7. ALBUTEROL [Concomitant]

REACTIONS (2)
  - Gallbladder non-functioning [Unknown]
  - Cholecystitis chronic [Unknown]
